FAERS Safety Report 10613669 (Version 1)
Quarter: 2014Q4

REPORT INFORMATION
  Report Type: Spontaneous
  Country: BR (occurrence: BR)
  Receive Date: 20141128
  Receipt Date: 20141128
  Transmission Date: 20150529
  Serious: Yes (Death, Other)
  Sender: FDA-Public Use
  Company Number: BR-ASTRAZENECA-2014SE90727

PATIENT
  Sex: Male

DRUGS (5)
  1. TENORETIC [Suspect]
     Active Substance: ATENOLOL\CHLORTHALIDONE
     Indication: DIURETIC THERAPY
     Route: 048
  2. PROPRANOLOL [Suspect]
     Active Substance: PROPRANOLOL\PROPRANOLOL HYDROCHLORIDE
     Indication: ARRHYTHMIA SUPRAVENTRICULAR
     Route: 048
  3. LEXOTAN [Concomitant]
     Active Substance: BROMAZEPAM
     Indication: ARRHYTHMIA SUPRAVENTRICULAR
     Route: 048
  4. SELOPRESS [Suspect]
     Active Substance: HYDROCHLOROTHIAZIDE\METOPROLOL TARTRATE
     Indication: HYPERTENSION
     Route: 048
  5. TENORETIC [Suspect]
     Active Substance: ATENOLOL\CHLORTHALIDONE
     Indication: HYPERTENSION
     Route: 048

REACTIONS (2)
  - Arrhythmia supraventricular [Not Recovered/Not Resolved]
  - Road traffic accident [Fatal]

NARRATIVE: CASE EVENT DATE: 19971125
